FAERS Safety Report 4790094-6 (Version None)
Quarter: 2005Q3

REPORT INFORMATION
  Report Type: 
  Country: None (occurrence: None)
  Receive Date: 20050914
  Receipt Date: 20041216
  Transmission Date: 20060218
  Serious: Yes (Hospitalization)
  Sender: FDA-Public Use
  Company Number: 163-20785-04120468

PATIENT
  Age: 71 Year
  Sex: Male

DRUGS (3)
  1. THALOMID [Suspect]
     Indication: MULTIPLE MYELOMA
     Dosage: 50 MG, QHS, ORAL
     Route: 048
     Dates: start: 20041001
  2. ACETYLSALICYLIC ACID SRT [Concomitant]
  3. ZETIA [Concomitant]

REACTIONS (3)
  - DIZZINESS [None]
  - HYPERCALCAEMIA [None]
  - PARAESTHESIA [None]
